FAERS Safety Report 4536209-6 (Version None)
Quarter: 2004Q4

REPORT INFORMATION
  Report Type: 
  Country: None (occurrence: None)
  Receive Date: 20041223
  Receipt Date: 20041214
  Transmission Date: 20050328
  Serious: Yes (Other)
  Sender: FDA-Public Use
  Company Number: GB-GLAXOSMITHKLINE-B0361884A

PATIENT
  Age: 57 Year
  Sex: Male

DRUGS (6)
  1. AVANDAMET [Suspect]
     Dosage: 500MG TWICE PER DAY
     Route: 048
     Dates: start: 20041203, end: 20041208
  2. SIMVASTATIN [Concomitant]
     Dosage: 20MG PER DAY
     Route: 048
  3. ENALAPRIL [Concomitant]
     Dosage: 20MG PER DAY
     Route: 048
  4. BENDROFLUAZIDE [Concomitant]
     Dosage: 2.5MG PER DAY
     Route: 048
  5. AMLODIPINE [Concomitant]
     Dosage: 10MG PER DAY
     Route: 048
  6. TEMAZEPAM [Concomitant]
     Dosage: 40MG PER DAY
     Route: 048

REACTIONS (3)
  - ANAPHYLACTIC REACTION [None]
  - SWELLING FACE [None]
  - URTICARIA [None]
